FAERS Safety Report 18263471 (Version 1)
Quarter: 2020Q3

REPORT INFORMATION
  Report Type: Spontaneous
  Country: None (occurrence: US)
  Receive Date: 20200914
  Receipt Date: 20200914
  Transmission Date: 20201103
  Serious: No
  Sender: FDA-Public Use
  Company Number: US-CEDIPROF, INC.-2090668

PATIENT
  Sex: Female

DRUGS (15)
  1. NAPROXEN. [Suspect]
     Active Substance: NAPROXEN
  2. FLUOXETINE [Suspect]
     Active Substance: FLUOXETINE HYDROCHLORIDE
  3. FENTANYL. [Suspect]
     Active Substance: FENTANYL
  4. FAMOTIDINE. [Suspect]
     Active Substance: FAMOTIDINE
  5. LATANOPROST. [Suspect]
     Active Substance: LATANOPROST
  6. NABUMETONE. [Suspect]
     Active Substance: NABUMETONE
  7. CHANTIX [Suspect]
     Active Substance: VARENICLINE TARTRATE
  8. IBUPROFEN. [Suspect]
     Active Substance: IBUPROFEN
  9. PANTOPRAZOLE SODIUM. [Suspect]
     Active Substance: PANTOPRAZOLE SODIUM
  10. BETAMETHASONE ACETATE ? BETAMETHASONE SODIUM [Suspect]
     Active Substance: BETAMETHASONE ACETATE\BETAMETHASONE SODIUM PHOSPHATE
  11. METRONIDAZOLE. [Suspect]
     Active Substance: METRONIDAZOLE
  12. SYMBICORT [Suspect]
     Active Substance: BUDESONIDE\FORMOTEROL FUMARATE DIHYDRATE
  13. CYCLOBENZAPRINE. [Suspect]
     Active Substance: CYCLOBENZAPRINE
  14. HYDROCDONE APAP [Suspect]
     Active Substance: ACETAMINOPHEN\HYDROCODONE BITARTRATE
  15. LEVO?T [Suspect]
     Active Substance: LEVOTHYROXINE SODIUM
     Indication: PRODUCT USED FOR UNKNOWN INDICATION

REACTIONS (4)
  - Depression [Unknown]
  - Suicide attempt [Unknown]
  - Hospitalisation [Unknown]
  - Eating disorder [Unknown]
